FAERS Safety Report 5242729-1 (Version None)
Quarter: 2007Q1

REPORT INFORMATION
  Report Type: 
  Country: None (occurrence: None)
  Receive Date: 20070221
  Receipt Date: 20070213
  Transmission Date: 20070707
  Serious: Yes (Other)
  Sender: FDA-Public Use
  Company Number: FI-GLAXOSMITHKLINE-B0458961A

PATIENT
  Age: 13 Year
  Sex: Female

DRUGS (2)
  1. FLIXOTIDE DISKUS [Suspect]
     Indication: ASTHMA
     Route: 055
  2. VENTOLIN DISKUS [Suspect]
     Indication: DRUG USE FOR UNKNOWN INDICATION
     Route: 055

REACTIONS (1)
  - ASTHMA [None]
